FAERS Safety Report 5254721-1 (Version None)
Quarter: 2007Q1

REPORT INFORMATION
  Report Type: 
  Country: None (occurrence: None)
  Receive Date: 20070227
  Receipt Date: 20070208
  Transmission Date: 20070707
  Serious: Yes (Other)
  Sender: FDA-Public Use
  Company Number: 236386

PATIENT
  Age: 16 Year
  Sex: Male
  Weight: 56.7 kg

DRUGS (1)
  1. NUTROPIN AQ [Suspect]
     Indication: GROWTH HORMONE DEFICIENCY
     Dosage: 3.3 MG, QD, SUBCUTANEOUS
     Route: 058
     Dates: start: 20050201

REACTIONS (1)
  - HIP FRACTURE [None]
